FAERS Safety Report 5980259-X (Version None)
Quarter: 2008Q4

REPORT INFORMATION
  Report Type: 
  Country: None (occurrence: None)
  Receive Date: 20081205
  Receipt Date: 20081126
  Transmission Date: 20090506
  Serious: Yes (Other)
  Sender: FDA-Public Use
  Company Number: PHHY2008MX29989

PATIENT
  Age: 37 Year
  Sex: Female

DRUGS (1)
  1. TRILEPTAL [Suspect]
     Indication: EPILEPSY
     Dosage: 300 MG, QD
     Dates: start: 20061201

REACTIONS (2)
  - BRAIN LOBECTOMY [None]
  - NERVOUS SYSTEM DISORDER [None]
